FAERS Safety Report 13268755 (Version 1)
Quarter: 2017Q1

REPORT INFORMATION
  Report Type: Spontaneous
  Country: US (occurrence: US)
  Receive Date: 20170224
  Receipt Date: 20170224
  Transmission Date: 20170428
  Serious: Yes (Hospitalization)
  Sender: FDA-Public Use
  Company Number: None

PATIENT
  Age: 61 Year
  Sex: Male
  Weight: 120.7 kg

DRUGS (2)
  1. ORITAVANCIN. [Suspect]
     Active Substance: ORITAVANCIN
     Indication: SOFT TISSUE INFECTION
     Dosage: ?          OTHER FREQUENCY:DAY 1 THEN DAY 10;?
     Route: 042
     Dates: start: 20170224, end: 20170224
  2. ORITAVANCIN. [Suspect]
     Active Substance: ORITAVANCIN
     Indication: SKIN INFECTION
     Dosage: ?          OTHER FREQUENCY:DAY 1 THEN DAY 10;?
     Route: 042
     Dates: start: 20170224, end: 20170224

REACTIONS (1)
  - Chills [None]

NARRATIVE: CASE EVENT DATE: 20170224
